FAERS Safety Report 4694407-5 (Version None)
Quarter: 2005Q2

REPORT INFORMATION
  Report Type: 
  Country: None (occurrence: None)
  Receive Date: 20050614
  Receipt Date: 20050316
  Transmission Date: 20051028
  Serious: No
  Sender: FDA-Public Use
  Company Number: USA050393378

PATIENT
  Age: 47 Year
  Sex: Male

DRUGS (2)
  1. CIALIS [Suspect]
     Dosage: 20 MG
     Dates: start: 20050201
  2. ACEON [Concomitant]

REACTIONS (3)
  - ERECTION INCREASED [None]
  - PAINFUL ERECTION [None]
  - THERAPEUTIC RESPONSE INCREASED [None]
